FAERS Safety Report 14478985 (Version 1)
Quarter: 2018Q1

REPORT INFORMATION
  Report Type: Report from Study
  Country: KR (occurrence: KR)
  Receive Date: 20180202
  Receipt Date: 20180202
  Transmission Date: 20180509
  Serious: Yes (Hospitalization, Other)
  Sender: FDA-Public Use
  Company Number: KR-ROCHE-1225262

PATIENT
  Age: 7 Year
  Sex: Male
  Weight: 56.8 kg

DRUGS (9)
  1. CALCORT [Concomitant]
     Active Substance: DEFLAZACORT
     Indication: NEPHROTIC SYNDROME
     Route: 065
     Dates: end: 20090814
  2. RITUXIMAB. [Suspect]
     Active Substance: RITUXIMAB
     Indication: NEPHROTIC SYNDROME
     Route: 042
     Dates: start: 20080530
  3. RITUXIMAB. [Suspect]
     Active Substance: RITUXIMAB
     Route: 042
     Dates: start: 20080607
  4. RITUXIMAB. [Suspect]
     Active Substance: RITUXIMAB
     Route: 042
     Dates: start: 20090224
  5. RITUXIMAB. [Suspect]
     Active Substance: RITUXIMAB
     Route: 042
     Dates: start: 20090730
  6. RITUXIMAB. [Suspect]
     Active Substance: RITUXIMAB
     Route: 042
     Dates: start: 20110226, end: 201103
  7. CIPOL-N [Concomitant]
     Route: 065
     Dates: end: 20100104
  8. RITUXIMAB. [Suspect]
     Active Substance: RITUXIMAB
     Route: 042
     Dates: start: 20100305
  9. RITUXIMAB. [Suspect]
     Active Substance: RITUXIMAB
     Route: 042
     Dates: start: 20100924

REACTIONS (4)
  - H1N1 influenza [Recovered/Resolved]
  - Varicella [Recovered/Resolved]
  - Histiocytic necrotising lymphadenitis [Recovered/Resolved]
  - Infusion related reaction [Unknown]

NARRATIVE: CASE EVENT DATE: 20091019
